FAERS Safety Report 6268284-5 (Version None)
Quarter: 2009Q3

REPORT INFORMATION
  Report Type: 
  Country: None (occurrence: None)
  Receive Date: 20090713
  Receipt Date: 20090713
  Transmission Date: 20100115
  Serious: Yes (Hospitalization)
  Sender: FDA-Public Use
  Company Number: None

PATIENT
  Sex: Female
  Weight: 56.7 kg

DRUGS (2)
  1. WARFARIN SODIUM [Suspect]
     Indication: COAGULOPATHY
     Dosage: 7.5MG Q48H PO;  5MG Q48H PO  LONG TERM
     Route: 048
  2. WARFARIN SODIUM [Suspect]
     Indication: FACTOR V LEIDEN MUTATION
     Dosage: 7.5MG Q48H PO;  5MG Q48H PO  LONG TERM
     Route: 048

REACTIONS (10)
  - CERVICITIS [None]
  - DIZZINESS [None]
  - FALL [None]
  - HYPOTENSION [None]
  - HYPOVOLAEMIA [None]
  - MENORRHAGIA [None]
  - OVARIAN CYST [None]
  - SALPINGITIS [None]
  - UNRESPONSIVE TO STIMULI [None]
  - UTERINE CERVICAL SQUAMOUS METAPLASIA [None]
